FAERS Safety Report 20371370 (Version 1)
Quarter: 2022Q1

REPORT INFORMATION
  Report Type: Spontaneous
  Country: CN (occurrence: CN)
  Receive Date: 20220124
  Receipt Date: 20220124
  Transmission Date: 20220423
  Serious: Yes (Other)
  Sender: FDA-Public Use
  Company Number: CN-009507513-2201CHN004215

PATIENT
  Age: 91 Year
  Sex: Male
  Weight: 60 kg

DRUGS (1)
  1. CILASTATIN SODIUM\IMIPENEM [Suspect]
     Active Substance: CILASTATIN SODIUM\IMIPENEM
     Indication: Symptomatic treatment
     Dosage: 1 GRAM, TWICE DAILY
     Route: 041
     Dates: start: 20211116, end: 20211117

REACTIONS (6)
  - Hallucination [Recovered/Resolved]
  - Epilepsy [Recovering/Resolving]
  - Trismus [Recovered/Resolved]
  - Blood pressure decreased [Recovered/Resolved]
  - Dyspnoea [Recovered/Resolved]
  - Oral disorder [Recovered/Resolved]

NARRATIVE: CASE EVENT DATE: 20211117
